FAERS Safety Report 6260239-X (Version None)
Quarter: 2009Q3

REPORT INFORMATION
  Report Type: 
  Country: None (occurrence: None)
  Receive Date: 20090708
  Receipt Date: 20090629
  Transmission Date: 20100115
  Serious: Yes (Hospitalization)
  Sender: FDA-Public Use
  Company Number: IT-ASTRAZENECA-2009SE01917

PATIENT
  Age: 24315 Day
  Sex: Male

DRUGS (2)
  1. PREVEX [Suspect]
     Route: 048
     Dates: start: 20080322, end: 20090322
  2. ASPIRIN [Suspect]
     Route: 048
     Dates: start: 20080322, end: 20090322

REACTIONS (2)
  - ABDOMINAL PAIN UPPER [None]
  - VOMITING [None]
